FAERS Safety Report 8216533-6 (Version None)
Quarter: 2012Q1

REPORT INFORMATION
  Report Type: 
  Country: None (occurrence: None)
  Receive Date: 20120316
  Receipt Date: 20120312
  Transmission Date: 20120608
  Serious: Yes (Other)
  Sender: FDA-Public Use
  Company Number: US-PFIZER INC-2011209385

PATIENT
  Sex: Female
  Weight: 79.365 kg

DRUGS (4)
  1. CELEBREX [Suspect]
     Indication: RHEUMATOID ARTHRITIS
     Dosage: 200 MG, 1X/DAY
     Route: 048
     Dates: start: 20111101
  2. LISINOPRIL [Concomitant]
     Indication: HYPERTENSION
     Dosage: UNK
  3. FOLIC ACID [Concomitant]
     Dosage: UNK
  4. METHOTREXATE [Concomitant]
     Indication: RHEUMATOID ARTHRITIS
     Dosage: UNK

REACTIONS (7)
  - RED BLOOD CELL SEDIMENTATION RATE DECREASED [None]
  - ENERGY INCREASED [None]
  - FINGER DEFORMITY [None]
  - DRUG EFFECT DECREASED [None]
  - HYPOKINESIA [None]
  - PAIN [None]
  - THERAPEUTIC RESPONSE UNEXPECTED [None]
